FAERS Safety Report 4901999-7 (Version None)
Quarter: 2006Q1

REPORT INFORMATION
  Report Type: 
  Country: None (occurrence: None)
  Receive Date: 20060206
  Receipt Date: 20060202
  Transmission Date: 20060701
  Serious: Yes (Death)
  Sender: FDA-Public Use
  Company Number: US-SANOFI-SYNTHELABO-F01200600295

PATIENT
  Age: 72 Year
  Sex: Male

DRUGS (3)
  1. OXALIPLATIN [Suspect]
     Indication: OESOPHAGEAL CARCINOMA
     Route: 065
     Dates: start: 20051115, end: 20051115
  2. CAPECITABINE [Suspect]
     Route: 065
     Dates: end: 20051125
  3. RADIATION [Concomitant]
     Indication: OESOPHAGEAL CARCINOMA
     Dosage: 1.95 GY DAILY
     Dates: end: 20051201

REACTIONS (5)
  - DEATH [None]
  - DYSPHAGIA [None]
  - EMBOLIC STROKE [None]
  - GENERAL PHYSICAL HEALTH DETERIORATION [None]
  - OESOPHAGITIS [None]
